FAERS Safety Report 10744311 (Version 1)
Quarter: 2015Q1

REPORT INFORMATION
  Report Type: Report from Study
  Country: US (occurrence: None)
  Receive Date: 20150126
  Receipt Date: 20150126
  Transmission Date: 20150721
  Serious: Yes (Other)
  Sender: FDA-Public Use
  Company Number: US-2010VAL000287

PATIENT
  Age: 13 Year
  Sex: Female

DRUGS (12)
  1. METHYLPREDNISOLONE. [Concomitant]
     Active Substance: METHYLPREDNISOLONE
  2. PNEUMOVAX (PNEUMOCOCCAL VACCINE) [Concomitant]
  3. ASPIRIN (ACETYLSALICYLIC ACID) [Concomitant]
     Active Substance: ASPIRIN
  4. GARDASIL (HUMAN PAPPILLOMA VACCINE) [Concomitant]
  5. LISINOPRIL. [Concomitant]
     Active Substance: LISINOPRIL
  6. CALCITRIOL (CALCITRIOL) [Suspect]
     Active Substance: CALCITRIOL
     Indication: LUPUS NEPHRITIS
     Dosage: 1 UG, ALTERNATE DAYS IN DIALYSIS, INTRAVENOUS
     Route: 042
  7. OMEPRAZOLE. [Concomitant]
     Active Substance: OMEPRAZOLE
  8. RENAGEL/01459901/ SEVELAMER) [Concomitant]
  9. CLONIDINE. [Concomitant]
     Active Substance: CLONIDINE
  10. PLAQUENIL/00072602/ (HYDROXYCHLOROQUINE PHOSPHATE) [Concomitant]
  11. CELLCEPT [Suspect]
     Active Substance: MYCOPHENOLATE MOFETIL\MYCOPHENOLATE MOFETIL HYDROCHLORIDE
     Indication: LUPUS NEPHRITIS
     Route: 048
  12. EPOGEN [Concomitant]
     Active Substance: ERYTHROPOIETIN

REACTIONS (8)
  - Procedural complication [None]
  - Lupus nephritis [None]
  - Off label use [None]
  - Dyspnoea [None]
  - Skin irritation [None]
  - Dizziness [None]
  - Condition aggravated [None]
  - Application site irritation [None]

NARRATIVE: CASE EVENT DATE: 200812
